FAERS Safety Report 8848389 (Version 2)
Quarter: 2013Q2

REPORT INFORMATION
  Report Type: Spontaneous
  Country: BR (occurrence: BR)
  Receive Date: 20121019
  Receipt Date: 20130424
  Transmission Date: 20140414
  Serious: Yes (Other)
  Sender: FDA-Public Use
  Company Number: BR-AMGEN-BRASP2012016166

PATIENT
  Age: 58 Year
  Sex: Female
  Weight: 74 kg

DRUGS (12)
  1. ENBREL [Suspect]
     Indication: RHEUMATOID ARTHRITIS
     Dosage: 50 MG (ONE AMPOULE), WEEKLY
     Route: 058
     Dates: start: 20100822
  2. ENBREL [Suspect]
     Dosage: 50 MG, ONCE WEEKLY
     Route: 058
     Dates: start: 201201
  3. ENBREL [Suspect]
     Dosage: 50 MG (ONE AMPOULE), WEEKLY
     Route: 058
     Dates: start: 201006
  4. ARAVA [Concomitant]
     Indication: ARTHRITIS
     Dosage: 20 MG, 1X/DAY
     Dates: start: 2010
  5. ARAVA [Concomitant]
     Indication: RHEUMATOID ARTHRITIS
  6. PREDNISONE [Concomitant]
     Dosage: UNK
     Dates: start: 2006
  7. AZATHIOPRINE [Concomitant]
     Dosage: UNK
  8. CALCIUM W/COLECALCIFEROL [Concomitant]
     Dosage: UNK
  9. DORFLEX [Concomitant]
     Indication: ANALGESIC THERAPY
     Dosage: WHEN FEELING PAIN
     Dates: start: 2006
  10. PARACETAMOL [Concomitant]
     Indication: ANALGESIC THERAPY
     Dosage: WHEN FEELING PAIN
     Dates: start: 2006
  11. CALCIUM [Concomitant]
     Dosage: UNK
  12. CORTICOSTEROID NOS [Concomitant]
     Dosage: UNK

REACTIONS (8)
  - Arthralgia [Not Recovered/Not Resolved]
  - Pain in extremity [Not Recovered/Not Resolved]
  - Musculoskeletal pain [Not Recovered/Not Resolved]
  - Osteoarthritis [Unknown]
  - Spondylolisthesis [Not Recovered/Not Resolved]
  - Spinal disorder [Unknown]
  - Injection site discolouration [Unknown]
  - Injection site pain [Unknown]
